FAERS Safety Report 7549003-9 (Version None)
Quarter: 2011Q2

REPORT INFORMATION
  Report Type: 
  Country: None (occurrence: None)
  Receive Date: 20110608
  Receipt Date: 20110601
  Transmission Date: 20111010
  Serious: Yes (Other)
  Sender: FDA-Public Use
  Company Number: 2011SP024628

PATIENT
  Age: 60 Year
  Sex: Male
  Weight: 67 kg

DRUGS (4)
  1. CLARITIN [Suspect]
     Indication: RHINITIS ALLERGIC
     Dosage: 10 MG, QD, PO
     Route: 048
     Dates: start: 20080506
  2. SINGULAIR [Concomitant]
  3. CRESTOR [Suspect]
     Indication: DYSLIPIDAEMIA
     Dosage: 5 MG, QD, PO
     Route: 048
     Dates: start: 20110517, end: 20110525
  4. THEO-DUR [Concomitant]

REACTIONS (2)
  - PRURITUS [None]
  - URTICARIA [None]
